FAERS Safety Report 8071457-2 (Version None)
Quarter: 2012Q1

REPORT INFORMATION
  Report Type: 
  Country: None (occurrence: None)
  Receive Date: 20120125
  Receipt Date: 20120112
  Transmission Date: 20120608
  Serious: Yes (Hospitalization)
  Sender: FDA-Public Use
  Company Number: TR-MYLANLABS-2012S1001067

PATIENT
  Age: 49 Year
  Sex: Male

DRUGS (3)
  1. EPIRUBICIN [Concomitant]
     Indication: SIGNET-RING CELL CARCINOMA
     Dosage: TWO COURSES; SECOND COURSE 150MG IN 30 MINUTES
     Route: 065
  2. FLUOROURACIL [Suspect]
     Indication: SIGNET-RING CELL CARCINOMA
     Dosage: TWO COURSES; SECOND COURSE 1250MG IN 6 HOURS
     Route: 065
  3. CISPLATIN [Concomitant]
     Indication: SIGNET-RING CELL CARCINOMA
     Dosage: TWO COURSES; SECOND COURSE 40MG IN 2 HOURS
     Route: 065

REACTIONS (2)
  - KOUNIS SYNDROME [None]
  - VASOSPASM [None]
